FAERS Safety Report 7061793-0 (Version None)
Quarter: 2010Q4

REPORT INFORMATION
  Report Type: 
  Country: None (occurrence: None)
  Receive Date: 20101026
  Receipt Date: 20101019
  Transmission Date: 20110411
  Serious: Yes (Death, Hospitalization, Other)
  Sender: FDA-Public Use
  Company Number: BE-ABBOTT-10P-013-0648670-00

PATIENT
  Sex: Male
  Weight: 67 kg

DRUGS (3)
  1. HUMIRA [Suspect]
     Indication: ANKYLOSING SPONDYLITIS
     Dates: start: 20090508, end: 20100423
  2. TRAZODONE [Concomitant]
     Indication: PRODUCT USED FOR UNKNOWN INDICATION
     Dosage: IN THE EVENING
  3. LORAZEPAM [Concomitant]
     Indication: PRODUCT USED FOR UNKNOWN INDICATION
     Dosage: IN THE EVENING

REACTIONS (26)
  - ABDOMINAL DISTENSION [None]
  - ABDOMINAL PAIN [None]
  - ANAEMIA [None]
  - ANAL HAEMORRHAGE [None]
  - APPENDICITIS [None]
  - ARTHRALGIA [None]
  - ASPERGILLOSIS [None]
  - ATRIAL FIBRILLATION [None]
  - BACK PAIN [None]
  - BRONCHOPULMONARY ASPERGILLOSIS [None]
  - CONSTIPATION [None]
  - DECREASED APPETITE [None]
  - GASTROINTESTINAL HAEMORRHAGE [None]
  - HAEMATURIA [None]
  - HENOCH-SCHONLEIN PURPURA [None]
  - LEUKOCYTOCLASTIC VASCULITIS [None]
  - NEPHROGENIC ANAEMIA [None]
  - NEPHROTIC SYNDROME [None]
  - OEDEMA [None]
  - PROTEINURIA [None]
  - RENAL FAILURE [None]
  - RENAL IMPAIRMENT [None]
  - RESPIRATORY FAILURE [None]
  - URINARY TRACT INFECTION [None]
  - VASCULITIS GASTROINTESTINAL [None]
  - VASCULITIS NECROTISING [None]
